FAERS Safety Report 18972737 (Version 1)
Quarter: 2021Q1

REPORT INFORMATION
  Report Type: Spontaneous
  Country: CN (occurrence: CN)
  Receive Date: 20210305
  Receipt Date: 20210305
  Transmission Date: 20210420
  Serious: Yes (Other)
  Sender: FDA-Public Use
  Company Number: CN-ACCORD-188812

PATIENT
  Age: 48 Year
  Sex: Female

DRUGS (5)
  1. HYDROXYCHLOROQUINE [Concomitant]
     Active Substance: HYDROXYCHLOROQUINE
  2. BERAPROST/BERAPROST SODIUM [Concomitant]
     Active Substance: BERAPROST SODIUM
  3. PIRFENIDONE. [Suspect]
     Active Substance: PIRFENIDONE
     Indication: SYSTEMIC SCLERODERMA
  4. PREDNISONE. [Concomitant]
     Active Substance: PREDNISONE
  5. MYCOPHENOLIC ACID. [Suspect]
     Active Substance: MYCOPHENOLIC ACID
     Indication: SYSTEMIC SCLERODERMA

REACTIONS (2)
  - Condition aggravated [Unknown]
  - Fibrous histiocytoma [Unknown]
